FAERS Safety Report 11239128 (Version 1)
Quarter: 2015Q3

REPORT INFORMATION
  Report Type: Spontaneous
  Country: TR (occurrence: None)
  Receive Date: 20150701
  Receipt Date: 20150701
  Transmission Date: 20151125
  Serious: Yes (Death, Hospitalization, Other)
  Sender: FDA-Public Use
  Company Number: 2015CVI00022

PATIENT
  Age: 66 Year
  Sex: Female

DRUGS (2)
  1. WARFARIN (WARFARIN) [Suspect]
     Active Substance: WARFARIN
  2. DIGOXIN. [Suspect]
     Active Substance: DIGOXIN

REACTIONS (6)
  - Neck pain [None]
  - Spinal epidural haematoma [None]
  - Sensory loss [None]
  - Back pain [None]
  - Paraplegia [None]
  - International normalised ratio increased [None]
